FAERS Safety Report 8758219 (Version 1)
Quarter: 2012Q4

REPORT INFORMATION
  Report Type: 
  Country: MX (occurrence: MX)
  Receive Date: 20120829
  Receipt Date: 20120829
  Transmission Date: 20130627
  Serious: Yes (Other)
  Sender: FDA-Public Use
  Company Number: PHHY2010MX094700

PATIENT
  Sex: Female

DRUGS (1)
  1. ONBREZ [Suspect]
     Dosage: 1 DF, QD

REACTIONS (4)
  - Bronchitis [Unknown]
  - Sinusitis [Unknown]
  - Pain [Unknown]
  - Malaise [Unknown]
